FAERS Safety Report 16903712 (Version 6)
Quarter: 2019Q4

REPORT INFORMATION
  Report Type: Spontaneous
  Country: US (occurrence: US)
  Receive Date: 20191010
  Receipt Date: 20191114
  Transmission Date: 20200122
  Serious: No
  Sender: FDA-Public Use
  Company Number: US-PFIZER INC-2019434267

PATIENT
  Age: 72 Year
  Sex: Female
  Weight: 42.64 kg

DRUGS (9)
  1. VFEND [Suspect]
     Active Substance: VORICONAZOLE
     Indication: BRONCHOPULMONARY ASPERGILLOSIS
     Dosage: 200 MG, 2X/DAY
     Route: 048
     Dates: start: 20191004, end: 20191102
  2. ASPIRIN. [Concomitant]
     Active Substance: ASPIRIN
     Dosage: 81 MG, DAILY
  3. ADVAIR HFA [Concomitant]
     Active Substance: FLUTICASONE PROPIONATE\SALMETEROL XINAFOATE
     Indication: BRONCHIECTASIS
     Dosage: UNK UNK, 2X/DAY (250 MG/50 TWICE A DAY)
  4. SPIRIVA [Concomitant]
     Active Substance: TIOTROPIUM BROMIDE MONOHYDRATE
     Indication: BRONCHIECTASIS
     Dosage: 0.5 MG, 1X/DAY
  5. LEVOTHROID [Concomitant]
     Active Substance: LEVOTHYROXINE SODIUM
     Dosage: 0.75 MG, 1X/DAY (WITH MORNING DOSE ONLY)
  6. SERRAPEPTASE [Concomitant]
     Active Substance: SERRAPEPTASE
     Dosage: UNK, 1X/DAY (MORNING ONLY)
  7. FISH OIL [Concomitant]
     Active Substance: FISH OIL
     Dosage: UNK
  8. OREGANO OIL [Concomitant]
     Dosage: UNK, 1X/DAY (MORNING ONLY)
  9. LEVOTHYROXINE. [Concomitant]
     Active Substance: LEVOTHYROXINE
     Indication: THYROID DISORDER
     Dosage: 0.75 UG, UNK, ONCE A DAY, TAKES 6 TIMES A WEEK

REACTIONS (13)
  - Alopecia [Unknown]
  - Insomnia [Not Recovered/Not Resolved]
  - Pyrexia [Unknown]
  - Visual impairment [Recovered/Resolved]
  - Constipation [Unknown]
  - Asthenia [Not Recovered/Not Resolved]
  - Dyschromatopsia [Recovered/Resolved]
  - Dry mouth [Unknown]
  - Lip dry [Unknown]
  - Muscular weakness [Unknown]
  - Fatigue [Not Recovered/Not Resolved]
  - Decreased appetite [Not Recovered/Not Resolved]
  - Nasal dryness [Unknown]

NARRATIVE: CASE EVENT DATE: 2019
